FAERS Safety Report 6435940-5 (Version None)
Quarter: 2009Q4

REPORT INFORMATION
  Report Type: 
  Country: None (occurrence: None)
  Receive Date: 20091111
  Receipt Date: 20091105
  Transmission Date: 20100525
  Serious: Yes (Other)
  Sender: FDA-Public Use
  Company Number: BR-BAYER-200923642LA

PATIENT
  Age: 32 Year
  Sex: Female

DRUGS (2)
  1. MIRANOVA [Suspect]
     Indication: DRUG USE FOR UNKNOWN INDICATION
     Route: 048
     Dates: start: 20090501, end: 20091001
  2. GARDENAL [Concomitant]
     Indication: PETIT MAL EPILEPSY
     Route: 048
     Dates: start: 20040101

REACTIONS (3)
  - ABORTION THREATENED [None]
  - ANTEPARTUM HAEMORRHAGE [None]
  - PREGNANCY ON ORAL CONTRACEPTIVE [None]
